FAERS Safety Report 8770969 (Version 2)
Quarter: 2012Q4

REPORT INFORMATION
  Report Type: 
  Country: JP (occurrence: JP)
  Receive Date: 20120906
  Receipt Date: 20120918
  Transmission Date: 20130627
  Serious: Yes (Hospitalization)
  Sender: FDA-Public Use
  Company Number: JP-PFIZER INC-2012215620

PATIENT
  Age: 65 Year
  Sex: Male

DRUGS (3)
  1. LYRICA [Suspect]
     Dosage: 75 mg, 1x/day
     Route: 048
  2. PLAVIX [Concomitant]
     Dosage: 75 mg, daily
     Route: 048
  3. REQUIP [Concomitant]
     Dosage: 6 mg, daily
     Route: 048

REACTIONS (1)
  - Dehydration [Recovered/Resolved]
